FAERS Safety Report 12705408 (Version 1)
Quarter: 2016Q3

REPORT INFORMATION
  Report Type: Spontaneous
  Country: US (occurrence: None)
  Receive Date: 20160831
  Receipt Date: 20160831
  Transmission Date: 20161109
  Serious: No
  Sender: FDA-Public Use
  Company Number: None

PATIENT
  Age: 22 Year
  Sex: Female

DRUGS (1)
  1. NEOMYCIN/POLYMYX/HYDROCORTISONE OTIC [Suspect]
     Active Substance: HYDROCORTISONE\NEOMYCIN SULFATE\POLYMYXIN B SULFATE
     Indication: EAR INFECTION
     Dosage: 4 DROP(S) THREE TIMES A DAY INTO THE EAR
     Dates: start: 20160825, end: 20160825

REACTIONS (3)
  - Sleep disorder [None]
  - Ear pain [None]
  - Ear discomfort [None]

NARRATIVE: CASE EVENT DATE: 20160829
